FAERS Safety Report 7300974-5 (Version None)
Quarter: 2010Q4

REPORT INFORMATION
  Report Type: 
  Country: None (occurrence: None)
  Receive Date: 20101230
  Receipt Date: 20100701
  Transmission Date: 20110411
  Serious: Yes (Hospitalization, Other)
  Sender: FDA-Public Use
  Company Number: 20100305

PATIENT
  Age: 20 Year
  Sex: Female

DRUGS (2)
  1. VENOFER [Suspect]
     Indication: IRON DEFICIENCY ANAEMIA
     Dosage: 500 MG/100 ML NS/3, INTRAVENOUS
     Route: 042
     Dates: start: 20100629, end: 20100629
  2. ORAL CONTRACEPTIVE [Concomitant]

REACTIONS (3)
  - ANAPHYLACTOID REACTION [None]
  - OEDEMA PERIPHERAL [None]
  - PARAESTHESIA [None]
